FAERS Safety Report 21814027 (Version 1)
Quarter: 2023Q1

REPORT INFORMATION
  Report Type: Other
  Country: None (occurrence: US)
  Receive Date: 20230104
  Receipt Date: 20230104
  Transmission Date: 20230418
  Serious: Yes (Hospitalization)
  Sender: FDA-Public Use
  Company Number: US-OrBion Pharmaceuticals Private Limited-2136393

PATIENT
  Age: 5 Year
  Sex: Male
  Weight: 22.7 kg

DRUGS (2)
  1. LEVETIRACETAM [Suspect]
     Active Substance: LEVETIRACETAM
     Indication: Status epilepticus
     Route: 042
  2. LORAZEPAM [Concomitant]
     Active Substance: LORAZEPAM
     Route: 042

REACTIONS (2)
  - Delirium [Recovered/Resolved]
  - Drug ineffective [Unknown]
